FAERS Safety Report 6347225-6 (Version None)
Quarter: 2009Q3

REPORT INFORMATION
  Report Type: 
  Country: None (occurrence: None)
  Receive Date: 20090910
  Receipt Date: 20090904
  Transmission Date: 20100115
  Serious: Yes (Other)
  Sender: FDA-Public Use
  Company Number: PHHY2009CA36623

PATIENT
  Sex: Male

DRUGS (4)
  1. RASILEZ [Suspect]
     Indication: BLOOD PRESSURE INCREASED
     Dosage: 300 MG
     Route: 048
     Dates: start: 20080905, end: 20090703
  2. AVALIDE [Concomitant]
     Dosage: 300/25 MG
  3. IMOVANE [Concomitant]
     Dosage: 7.5 MG
  4. FELODIPINE [Concomitant]
     Dosage: 10 MG/DAY

REACTIONS (1)
  - MYALGIA [None]
